FAERS Safety Report 5293785-6 (Version None)
Quarter: 2007Q2

REPORT INFORMATION
  Report Type: 
  Country: None (occurrence: None)
  Receive Date: 20070404
  Receipt Date: 20070326
  Transmission Date: 20071010
  Serious: Yes (Hospitalization)
  Sender: FDA-Public Use
  Company Number: 232368K07USA

PATIENT
  Age: 42 Year
  Sex: Male

DRUGS (3)
  1. REBIF [Suspect]
     Indication: MULTIPLE SCLEROSIS
     Dosage: 44 MCG, 3 IN 1 WEEKS, SUBCUTANEOUS
     Route: 058
     Dates: start: 20061225, end: 20070301
  2. TYLENOL (COTYLENOL) [Concomitant]
  3. IBUPROFEN [Concomitant]

REACTIONS (9)
  - BALANCE DISORDER [None]
  - DIPLOPIA [None]
  - DYSARTHRIA [None]
  - DYSPHAGIA [None]
  - FALL [None]
  - HEAD INJURY [None]
  - HEPATIC ENZYME INCREASED [None]
  - PARANEOPLASTIC CEREBELLAR DEGENERATION [None]
  - TESTICULAR NEOPLASM [None]
